FAERS Safety Report 4629729-7 (Version None)
Quarter: 2005Q2

REPORT INFORMATION
  Report Type: 
  Country: None (occurrence: None)
  Receive Date: 20050407
  Receipt Date: 20050321
  Transmission Date: 20051028
  Serious: Yes (Hospitalization)
  Sender: FDA-Public Use
  Company Number: FR_050306084

PATIENT
  Age: 71 Year
  Sex: Male

DRUGS (7)
  1. PROZAC [Suspect]
     Dates: end: 20040901
  2. URBANYL (CLOBAZAM) [Concomitant]
  3. FOSAMAX [Concomitant]
  4. ATORVASTATIN CALCIUM [Concomitant]
  5. PLAVIX [Concomitant]
  6. DEPAKENE [Concomitant]
  7. LANSOPRAZOLE [Concomitant]

REACTIONS (4)
  - BRADYCARDIA [None]
  - ELECTROCARDIOGRAM PR SHORTENED [None]
  - SOMNOLENCE [None]
  - VENTRICULAR EXTRASYSTOLES [None]
